FAERS Safety Report 14768425 (Version 1)
Quarter: 2018Q2

REPORT INFORMATION
  Report Type: Spontaneous
  Country: US (occurrence: US)
  Receive Date: 20180410
  Receipt Date: 20180410
  Transmission Date: 20180711
  Serious: No
  Sender: FDA-Public Use
  Company Number: None

PATIENT
  Age: 65 Year
  Sex: Male

DRUGS (7)
  1. QUETIAPINE. [Concomitant]
     Active Substance: QUETIAPINE
  2. LIOTHYRONINE [Concomitant]
     Active Substance: LIOTHYRONINE
  3. CLOPINDOGREL [Concomitant]
  4. LEVOTHYROXIN [Concomitant]
     Active Substance: LEVOTHYROXINE
  5. OCALIVA [Suspect]
     Active Substance: OBETICHOLIC ACID
     Indication: PRIMARY BILIARY CHOLANGITIS
     Route: 048
     Dates: start: 20170227, end: 201804
  6. ATORVASTATIN [Concomitant]
     Active Substance: ATORVASTATIN
  7. URSODIOL. [Concomitant]
     Active Substance: URSODIOL

REACTIONS (2)
  - Pruritus [None]
  - Therapy non-responder [None]

NARRATIVE: CASE EVENT DATE: 201804
